FAERS Safety Report 6937077-5 (Version None)
Quarter: 2010Q3

REPORT INFORMATION
  Report Type: 
  Country: None (occurrence: None)
  Receive Date: 20100823
  Receipt Date: 20100817
  Transmission Date: 20110219
  Serious: Yes (Death, Other)
  Sender: FDA-Public Use
  Company Number: PHHY2010JP54505

PATIENT
  Sex: Female
  Weight: 54 kg

DRUGS (5)
  1. CO-DIOVAN T32564+FCTAB [Suspect]
     Indication: HYPERTENSION
     Dosage: 1 DF DAILY
     Route: 048
     Dates: start: 20090616, end: 20091208
  2. CONIEL [Concomitant]
     Indication: HYPERTENSION
     Dosage: 4 MG
     Route: 048
     Dates: start: 20050506, end: 20091208
  3. DOXAZOSIN MESYLATE [Concomitant]
     Indication: HYPERTENSION
     Dosage: 2 MG
     Route: 048
     Dates: start: 20050513, end: 20091208
  4. THYRADIN S [Concomitant]
     Dosage: 50 MCG
     Route: 048
     Dates: start: 20050506, end: 20091208
  5. MEVALOTIN [Concomitant]
     Dosage: 10 MG
     Route: 048
     Dates: start: 20050506, end: 20091208

REACTIONS (1)
  - URETERIC CANCER [None]
